FAERS Safety Report 4406256-3 (Version None)
Quarter: 2004Q3

REPORT INFORMATION
  Report Type: 
  Country: None (occurrence: None)
  Receive Date: 20040723
  Receipt Date: 20030505
  Transmission Date: 20050211
  Serious: No
  Sender: FDA-Public Use
  Company Number: US-GLAXOSMITHKLINE-A0407513A

PATIENT
  Age: 50 Year
  Sex: Male
  Weight: 116.8 kg

DRUGS (4)
  1. AVANDIA [Suspect]
     Dosage: 4MG PER DAY
     Route: 048
     Dates: start: 20030203, end: 20030210
  2. DIOVAN [Concomitant]
     Indication: HYPERTENSION
     Dates: start: 20020101
  3. ZOCOR [Concomitant]
     Dosage: 40MG PER DAY
     Dates: start: 20030101
  4. GLUCOPHAGE XR [Concomitant]
     Dosage: 1000MG TWICE PER DAY
     Dates: start: 20030101

REACTIONS (1)
  - HAEMATURIA [None]
